FAERS Safety Report 6460645-4 (Version None)
Quarter: 2009Q4

REPORT INFORMATION
  Report Type: 
  Country: None (occurrence: None)
  Receive Date: 20091130
  Receipt Date: 20091126
  Transmission Date: 20100525
  Serious: Yes (Life-Threatening, Hospitalization)
  Sender: FDA-Public Use
  Company Number: GB-JNJFOC-20090205941

PATIENT
  Age: 26 Year
  Sex: Male

DRUGS (3)
  1. RISPERDAL CONSTA [Suspect]
     Indication: SCHIZOPHRENIA, PARANOID TYPE
     Route: 030
  2. CHLOPROMAZINE [Concomitant]
     Indication: AGITATION
     Route: 048
  3. LORAZEPAM [Concomitant]
     Route: 048

REACTIONS (1)
  - DIABETIC KETOACIDOSIS [None]
